FAERS Safety Report 5592891-6 (Version None)
Quarter: 2008Q1

REPORT INFORMATION
  Report Type: 
  Country: None (occurrence: None)
  Receive Date: 20080116
  Receipt Date: 20080111
  Transmission Date: 20080703
  Serious: Yes (Other)
  Sender: FDA-Public Use
  Company Number: HQWYE853722AUG06

PATIENT
  Sex: Female

DRUGS (3)
  1. PREMPHASE 14/14 [Suspect]
  2. CONJUGATED ESTROGENS [Suspect]
  3. PROVERA [Suspect]

REACTIONS (1)
  - BREAST CANCER METASTATIC [None]
